FAERS Safety Report 9517383 (Version 2)
Quarter: 2013Q3

REPORT INFORMATION
  Report Type: Spontaneous
  Country: US (occurrence: US)
  Receive Date: 20130911
  Receipt Date: 20130913
  Transmission Date: 20140515
  Serious: Yes (Other)
  Sender: FDA-Public Use
  Company Number: CHPA2013US014015

PATIENT
  Age: 71 Year
  Sex: Female

DRUGS (6)
  1. PREVACID 24HR 15MG [Suspect]
     Indication: GASTRIC DISORDER
     Dosage: UNK, UNK
     Route: 048
  2. GAS X [Concomitant]
     Indication: FLATULENCE
     Dosage: 1-2 TABLETS
  3. GAS X [Concomitant]
     Indication: ABDOMINAL DISTENSION
  4. MAALOX MAX ANTACID/ANTI-GAS [Concomitant]
     Indication: IRRITABLE BOWEL SYNDROME
     Route: 048
  5. MAALOX MAX ANTACID/ANTI-GAS [Concomitant]
     Indication: GASTRIC DISORDER
  6. ECOTRIN [Concomitant]
     Route: 048

REACTIONS (2)
  - Arthropathy [Recovered/Resolved]
  - Off label use [Unknown]
